FAERS Safety Report 5952650-9 (Version None)
Quarter: 2008Q4

REPORT INFORMATION
  Report Type: 
  Country: None (occurrence: None)
  Receive Date: 20081031
  Receipt Date: 20071001
  Transmission Date: 20090506
  Serious: Yes (Hospitalization)
  Sender: FDA-Public Use
  Company Number: 019044

PATIENT
  Age: 43 Year
  Sex: Female
  Weight: 63.9 kg

DRUGS (1)
  1. SEASONALE [Suspect]
     Dosage: ORAL
     Route: 048
     Dates: start: 20060101, end: 20070425

REACTIONS (2)
  - CEREBROVASCULAR ACCIDENT [None]
  - MUSCULAR WEAKNESS [None]
